FAERS Safety Report 6175883-8 (Version None)
Quarter: 2009Q2

REPORT INFORMATION
  Report Type: 
  Country: None (occurrence: None)
  Receive Date: 20090501
  Receipt Date: 20090421
  Transmission Date: 20091009
  Serious: Yes (Hospitalization, Other)
  Sender: FDA-Public Use
  Company Number: JP-PFIZER INC-2009188762

PATIENT

DRUGS (7)
  1. AZULFIDINE [Suspect]
     Indication: RHEUMATOID ARTHRITIS
     Dosage: 500 MG, 2X/DAY
     Route: 048
     Dates: start: 20090127, end: 20090223
  2. RHEUMATREX [Suspect]
     Indication: RHEUMATOID ARTHRITIS
     Dosage: 4 MG, 2X/DAY
     Dates: start: 20090127, end: 20090101
  3. CELEBREX [Concomitant]
     Indication: RHEUMATOID ARTHRITIS
     Dosage: 200 MG, 2X/DAY
     Dates: start: 20090127, end: 20090220
  4. SELBEX [Concomitant]
     Route: 048
     Dates: start: 20090217, end: 20090220
  5. LOXONIN [Concomitant]
     Route: 048
     Dates: start: 20090218, end: 20090220
  6. FLOMOX [Concomitant]
     Route: 048
     Dates: start: 20090218, end: 20090220
  7. CELESTAMINE [Concomitant]
     Route: 048
     Dates: start: 20090218, end: 20090220

REACTIONS (3)
  - DRUG RASH WITH EOSINOPHILIA AND SYSTEMIC SYMPTOMS [None]
  - LYMPHOMA [None]
  - STOMATITIS [None]
